FAERS Safety Report 16782152 (Version 1)
Quarter: 2019Q3

REPORT INFORMATION
  Report Type: Spontaneous
  Country: US (occurrence: US)
  Receive Date: 20190906
  Receipt Date: 20190906
  Transmission Date: 20191005
  Serious: Yes (Life-Threatening, Hospitalization, Other)
  Sender: FDA-Public Use
  Company Number: US-PROCTER_AND_GAMBLE-GS19094695

PATIENT
  Age: 2 Year
  Sex: Female

DRUGS (4)
  1. PARACETAMOL [Suspect]
     Active Substance: ACETAMINOPHEN
  2. LIDOCAINE. [Concomitant]
     Active Substance: LIDOCAINE
  3. DIPHENHYDRAMINE HCL [Suspect]
     Active Substance: DIPHENHYDRAMINE HYDROCHLORIDE
  4. ACETYLSALICYLIC ACID [Concomitant]
     Active Substance: ASPIRIN

REACTIONS (19)
  - Overdose [Not Recovered/Not Resolved]
  - Blood glucose decreased [Unknown]
  - White blood cell count increased [Unknown]
  - Analgesic drug level increased [Unknown]
  - Speech disorder [Not Recovered/Not Resolved]
  - Ammonia increased [Recovered/Resolved]
  - Activated partial thromboplastin time prolonged [Unknown]
  - Hepatic failure [Recovered/Resolved]
  - Vomiting [Recovered/Resolved]
  - Haemoglobin decreased [Unknown]
  - Sinus tachycardia [Recovered/Resolved]
  - Hypoglycaemia [Recovered/Resolved]
  - Lethargy [Recovered/Resolved]
  - pH body fluid decreased [Unknown]
  - Aspartate aminotransferase increased [Recovered/Resolved]
  - Alanine aminotransferase increased [Unknown]
  - Seizure [Recovered/Resolved]
  - Blood bicarbonate decreased [Unknown]
  - International normalised ratio increased [Recovered/Resolved]
